FAERS Safety Report 15075039 (Version 2)
Quarter: 2023Q4

REPORT INFORMATION
  Report Type: Report from Study
  Country: US (occurrence: US)
  Receive Date: 20180627
  Receipt Date: 20231109
  Transmission Date: 20240110
  Serious: Yes (Hospitalization, Other)
  Sender: FDA-Public Use
  Company Number: US-SAOL THERAPEUTICS-2017SAO01640

PATIENT
  Age: 58 Year
  Sex: Female
  Weight: 49.887 kg

DRUGS (4)
  1. BACLOFEN [Suspect]
     Active Substance: BACLOFEN
     Dosage: 75 ?G, \DAY
     Route: 037
  2. CLONIDINE [Suspect]
     Active Substance: CLONIDINE
     Dosage: 150 ?G, \DAY
     Route: 037
  3. CLONIDINE [Suspect]
     Active Substance: CLONIDINE
     Dosage: 150.3 ?G, \DAY
     Route: 037
     Dates: start: 20170501
  4. BACLOFEN [Suspect]
     Active Substance: BACLOFEN
     Dosage: 75.13 ?G, \DAY
     Route: 037
     Dates: start: 20170501

REACTIONS (5)
  - Paraesthesia [Unknown]
  - Drug withdrawal syndrome [Recovered/Resolved]
  - Device power source issue [Recovered/Resolved]
  - Abdominal rigidity [Recovered/Resolved]
  - Pain [Recovered/Resolved]

NARRATIVE: CASE EVENT DATE: 20171017
